FAERS Safety Report 6326367-5 (Version None)
Quarter: 2009Q3

REPORT INFORMATION
  Report Type: 
  Country: None (occurrence: None)
  Receive Date: 20090818
  Receipt Date: 20090424
  Transmission Date: 20100115
  Serious: No
  Sender: FDA-Public Use
  Company Number: WAES 0904USA03986

PATIENT
  Sex: Male

DRUGS (12)
  1. JANUVIA [Suspect]
     Indication: DIABETES MELLITUS
     Dosage: 100 MG/DAILY/PO
     Route: 048
     Dates: start: 20070401, end: 20080101
  2. JANUVIA [Suspect]
     Indication: DIABETES MELLITUS
     Dosage: 100 MG/DAILY/PO
     Route: 048
     Dates: start: 20090420
  3. ACCUPRIL [Concomitant]
  4. GLUCOPHAGE [Concomitant]
  5. LANTUS [Concomitant]
  6. PROTONIX [Concomitant]
  7. SEROQUEL [Concomitant]
  8. TRICOR [Concomitant]
  9. TYSABRI [Concomitant]
  10. VICODIN [Concomitant]
  11. BACLOFEN [Concomitant]
  12. GLYBURIDE [Concomitant]

REACTIONS (2)
  - DIARRHOEA [None]
  - VOMITING [None]
